FAERS Safety Report 13091016 (Version 3)
Quarter: 2017Q1

REPORT INFORMATION
  Report Type: Report from Study
  Country: IT (occurrence: IT)
  Receive Date: 20170106
  Receipt Date: 20170328
  Transmission Date: 20170428
  Serious: Yes (Other)
  Sender: FDA-Public Use
  Company Number: IT-ACCORD-047213

PATIENT
  Age: 55 Year
  Sex: Male
  Weight: 43 kg

DRUGS (3)
  1. ERBITUX [Suspect]
     Active Substance: CETUXIMAB
     Indication: SQUAMOUS CELL CARCINOMA OF HEAD AND NECK
     Dosage: 400 MG/M2 CYCLICAL?LAST ADMINISTRATION DATE: 29-JUL-2016 (DURATION: 3 MONTHS)
     Route: 042
     Dates: start: 20160524
  2. CISPLATIN. [Suspect]
     Active Substance: CISPLATIN
     Indication: SQUAMOUS CELL CARCINOMA OF HEAD AND NECK
     Dosage: LAST ADMINISTRATION DATE: 29-JUL-2016 (DURATION: 67 DAYS)
     Route: 042
     Dates: start: 20160524
  3. FLUOROURACIL. [Suspect]
     Active Substance: FLUOROURACIL
     Indication: SQUAMOUS CELL CARCINOMA OF HEAD AND NECK
     Dosage: LAST ADMINISTRATION DATE: 29-JUL-2016 (DURATION: 67 DAYS)
     Route: 042
     Dates: start: 20160524

REACTIONS (2)
  - Decreased appetite [Recovered/Resolved]
  - Stomatitis [Recovered/Resolved]

NARRATIVE: CASE EVENT DATE: 20160708
